FAERS Safety Report 9690142 (Version 2)
Quarter: 2013Q4

REPORT INFORMATION
  Report Type: Spontaneous
  Country: NO (occurrence: NO)
  Receive Date: 20131115
  Receipt Date: 20131115
  Transmission Date: 20140711
  Serious: Yes (Other)
  Sender: FDA-Public Use
  Company Number: PHHY2013NO114606

PATIENT
  Age: 36 Year
  Sex: Female

DRUGS (4)
  1. GILENYA [Suspect]
     Indication: RELAPSING-REMITTING MULTIPLE SCLEROSIS
     Dosage: 0.5 MG, QD
     Route: 048
     Dates: start: 20130306
  2. BACLOFEN [Concomitant]
     Indication: MUSCLE SPASTICITY
     Dosage: 10 MG, QD
     Route: 048
  3. CYPROTERONE [Concomitant]
  4. FEMINIL [Concomitant]
     Indication: CONTRACEPTION

REACTIONS (6)
  - Radiculopathy [Unknown]
  - Spondyloarthropathy [Unknown]
  - Herpes zoster [Recovered/Resolved]
  - Lymphocyte count decreased [Unknown]
  - Back pain [Unknown]
  - Aspartate aminotransferase increased [Unknown]
